FAERS Safety Report 10040756 (Version 1)
Quarter: 2014Q1

REPORT INFORMATION
  Report Type: Spontaneous
  Country: US (occurrence: None)
  Receive Date: 20140326
  Receipt Date: 20140326
  Transmission Date: 20141002
  Serious: Yes (Other)
  Sender: FDA-Public Use
  Company Number: None

PATIENT
  Age: 26 Year
  Sex: Female

DRUGS (1)
  1. OXYCODONE APAP 10/325 ACTAVIS [Suspect]
     Indication: PAIN
     Route: 048

REACTIONS (19)
  - Product substitution issue [None]
  - Product quality issue [None]
  - Head discomfort [None]
  - Nausea [None]
  - Inadequate analgesia [None]
  - Pain [None]
  - Musculoskeletal stiffness [None]
  - Ill-defined disorder [None]
  - Soft tissue disorder [None]
  - Pain [None]
  - Loss of consciousness [None]
  - Somnolence [None]
  - Somnolence [None]
  - Hypophagia [None]
  - Disorientation [None]
  - Fatigue [None]
  - Gastrointestinal disorder [None]
  - Anxiety [None]
  - Depression [None]
